FAERS Safety Report 6009369-8 (Version None)
Quarter: 2008Q4

REPORT INFORMATION
  Report Type: 
  Country: None (occurrence: None)
  Receive Date: 20081217
  Receipt Date: 20081120
  Transmission Date: 20090506
  Serious: No
  Sender: FDA-Public Use
  Company Number: US-BAYER-200831696NA

PATIENT
  Age: 50 Year
  Sex: Female

DRUGS (1)
  1. YAZ [Suspect]
     Indication: CONTRACEPTION
     Route: 048
     Dates: start: 20080301, end: 20080912

REACTIONS (13)
  - ABDOMINAL PAIN UPPER [None]
  - BLOOD POTASSIUM INCREASED [None]
  - DIARRHOEA [None]
  - DRUG DOSE OMISSION [None]
  - HEPATIC CYST [None]
  - HYPOTHYROIDISM [None]
  - INSOMNIA [None]
  - LIBIDO DECREASED [None]
  - MUSCLE SPASMS [None]
  - NERVOUSNESS [None]
  - VAGINAL HAEMORRHAGE [None]
  - WEIGHT DECREASED [None]
  - WEIGHT INCREASED [None]
